FAERS Safety Report 8599282-4 (Version None)
Quarter: 2012Q3

REPORT INFORMATION
  Report Type: 
  Country: None (occurrence: None)
  Receive Date: 20120816
  Receipt Date: 20120702
  Transmission Date: 20120928
  Serious: No
  Sender: FDA-Public Use
  Company Number: US-AMGEN-USASP2012029809

PATIENT
  Sex: Male

DRUGS (2)
  1. NEULASTA [Suspect]
     Indication: PRODUCT USED FOR UNKNOWN INDICATION
     Dosage: UNK
  2. NEUPOGEN [Suspect]
     Indication: CHEMOTHERAPY
     Dosage: UNK UNK, PER CHEMO REGIM

REACTIONS (3)
  - URTICARIA [None]
  - BONE PAIN [None]
  - RASH GENERALISED [None]
